FAERS Safety Report 7150780-X (Version None)
Quarter: 2010Q4

REPORT INFORMATION
  Report Type: 
  Country: None (occurrence: None)
  Receive Date: 20101126
  Receipt Date: 20101110
  Transmission Date: 20110411
  Serious: Yes (Other)
  Sender: FDA-Public Use
  Company Number: 021806

PATIENT
  Sex: Female
  Weight: 91 kg

DRUGS (8)
  1. CIMZIA [Suspect]
     Indication: CROHN'S DISEASE
     Dosage: TWO SHOTS EVERY FOUR WEEKS SUBCUTANEOUS
     Route: 058
     Dates: start: 20100902
  2. IMURAN [Concomitant]
  3. LORTAB [Concomitant]
  4. INEXIUM /01479302/ [Concomitant]
  5. TOPAMAX [Concomitant]
  6. IMITREX [Concomitant]
  7. ZANAFLEX [Concomitant]
  8. MULTI-VITAMINS [Concomitant]

REACTIONS (4)
  - BACK INJURY [None]
  - FISTULA [None]
  - IMPAIRED HEALING [None]
  - ROAD TRAFFIC ACCIDENT [None]
